FAERS Safety Report 10518841 (Version 1)
Quarter: 2014Q4

REPORT INFORMATION
  Report Type: Spontaneous
  Country: US (occurrence: None)
  Receive Date: 20141014
  Receipt Date: 20141014
  Transmission Date: 20150528
  Serious: Yes (Other)
  Sender: FDA-Public Use
  Company Number: None

PATIENT
  Age: 55 Year
  Sex: Female
  Weight: 79.83 kg

DRUGS (2)
  1. MONTELUKAST [Suspect]
     Active Substance: MONTELUKAST SODIUM
     Indication: ALLERGY PROPHYLAXIS
     Route: 048
     Dates: start: 20120329, end: 20140601
  2. MONTELUKAST [Suspect]
     Active Substance: MONTELUKAST SODIUM
     Indication: ASTHMA PROPHYLAXIS
     Route: 048
     Dates: start: 20120329, end: 20140601

REACTIONS (2)
  - Product substitution issue [None]
  - No therapeutic response [None]

NARRATIVE: CASE EVENT DATE: 20140329
